FAERS Safety Report 20433511 (Version 3)
Quarter: 2023Q1

REPORT INFORMATION
  Report Type: Spontaneous
  Country: CA (occurrence: CA)
  Receive Date: 20220205
  Receipt Date: 20230324
  Transmission Date: 20230418
  Serious: Yes (Other)
  Sender: FDA-Public Use
  Company Number: CA-CELLTRION INC.-2021CA018868

PATIENT

DRUGS (12)
  1. INFLECTRA [Suspect]
     Active Substance: INFLIXIMAB-DYYB
     Indication: Colitis ulcerative
     Dosage: UNKNOWN DOSE AT 0,2, 6 WEEKS AND THEN EVERY 8 WEEKS.
     Route: 042
     Dates: start: 20210628
  2. INFLECTRA [Suspect]
     Active Substance: INFLIXIMAB-DYYB
     Dosage: 1 DF, UNKNOWN DOSE AT 0, 2 WEEKS AND400 MG AT 6 WEEK
     Route: 042
     Dates: start: 20210628, end: 20210806
  3. INFLECTRA [Suspect]
     Active Substance: INFLIXIMAB-DYYB
     Dosage: UNKNOWN DOSE AT 0,2, 6 WEEKS AND THEN EVERY 8 WEEKS.
     Route: 042
     Dates: start: 20210712
  4. INFLECTRA [Suspect]
     Active Substance: INFLIXIMAB-DYYB
     Dosage: 400 MG EVERY 8 WEEKS
     Route: 042
     Dates: start: 20211001
  5. INFLECTRA [Suspect]
     Active Substance: INFLIXIMAB-DYYB
     Dosage: UNKNOWN DOSE AT 0,2, 6 WEEKS AND THEN EVERY 8 WEEKS.
     Route: 042
     Dates: start: 20211126
  6. INFLECTRA [Suspect]
     Active Substance: INFLIXIMAB-DYYB
     Dosage: UNKNOWN DOSE AT 0,2, 6 WEEKS AND THEN EVERY 8 WEEKS.
     Route: 042
     Dates: start: 20211210
  7. INFLECTRA [Suspect]
     Active Substance: INFLIXIMAB-DYYB
     Dosage: UNKNOWN DOSE AT 0,2, 6 WEEKS AND THEN EVERY 8 WEEKS.
     Route: 042
     Dates: start: 20211210
  8. INFLECTRA [Suspect]
     Active Substance: INFLIXIMAB-DYYB
     Dosage: 400 MG (SUPPOSED TO RECEIVE 565 MG, EVERY 8 WEEK)
     Route: 042
     Dates: start: 20220207
  9. INFLECTRA [Suspect]
     Active Substance: INFLIXIMAB-DYYB
     Dosage: 400 MG EVERY 8 WEEKS
     Route: 042
     Dates: start: 20230120
  10. INFLECTRA [Suspect]
     Active Substance: INFLIXIMAB-DYYB
     Dosage: 400 MG EVERY 8 WEEKS
     Route: 042
     Dates: start: 20230315
  11. ACETAMINOPHEN [Concomitant]
     Active Substance: ACETAMINOPHEN
     Indication: Premedication
     Dosage: 650 MG
     Route: 048
     Dates: start: 20211210, end: 20211210
  12. DIPHENHYDRAMINE [Concomitant]
     Active Substance: DIPHENHYDRAMINE
     Indication: Premedication
     Dosage: 50 MG
     Route: 042
     Dates: start: 20211210, end: 20211210

REACTIONS (10)
  - Intestinal obstruction [Unknown]
  - Condition aggravated [Recovered/Resolved]
  - Prostatitis [Not Recovered/Not Resolved]
  - Mucous stools [Unknown]
  - Abdominal distension [Unknown]
  - Weight increased [Unknown]
  - Blood pressure fluctuation [Unknown]
  - Fatigue [Unknown]
  - Inappropriate schedule of product administration [Unknown]
  - Incorrect dose administered [Unknown]

NARRATIVE: CASE EVENT DATE: 20211210
